FAERS Safety Report 9532281 (Version 1)
Quarter: 2013Q1

REPORT INFORMATION
  Report Type: Spontaneous
  Country: US (occurrence: None)
  Receive Date: 20130323
  Receipt Date: 20130323
  Transmission Date: 20140127
  Serious: Yes (Other)
  Sender: FDA-Public Use
  Company Number: 1000041613

PATIENT
  Age: 47 Year
  Sex: Female

DRUGS (3)
  1. LINZESS (LINACLOTIDE) (290 MICROGRAM, TABLETS) [Suspect]
     Indication: IRRITABLE BOWEL SYNDROME
     Route: 048
     Dates: start: 201212
  2. LINZESS (LINACLOTIDE) (290 MICROGRAM, TABLETS) [Suspect]
     Indication: CONSTIPATION
     Route: 048
     Dates: start: 201212
  3. AMITIZA [Concomitant]

REACTIONS (1)
  - Drug ineffective [None]
